FAERS Safety Report 7141904-9 (Version None)
Quarter: 2010Q4

REPORT INFORMATION
  Report Type: 
  Country: None (occurrence: None)
  Receive Date: 20101207
  Receipt Date: 20101020
  Transmission Date: 20110411
  Serious: Yes (Other)
  Sender: FDA-Public Use
  Company Number: A0889318A

PATIENT
  Age: 42 Year
  Sex: Male
  Weight: 108.6 kg

DRUGS (7)
  1. OFATUMUMAB [Suspect]
     Indication: NON-HODGKIN'S LYMPHOMA
     Route: 042
     Dates: start: 20101013
  2. HYDROCODONE [Concomitant]
  3. ATIVAN [Concomitant]
  4. CLORAZEPATE DIPOTASSIUM [Concomitant]
  5. PROMETHAZINE [Concomitant]
  6. PROTONIX [Concomitant]
  7. ZOLOFT [Concomitant]

REACTIONS (5)
  - ERYTHEMA [None]
  - FAECES DISCOLOURED [None]
  - NAUSEA [None]
  - OXYGEN SATURATION DECREASED [None]
  - RASH [None]
